FAERS Safety Report 11914368 (Version 1)
Quarter: 2016Q1

REPORT INFORMATION
  Report Type: Spontaneous
  Country: US (occurrence: US)
  Receive Date: 20160113
  Receipt Date: 20160113
  Transmission Date: 20160526
  Serious: No
  Sender: FDA-Public Use
  Company Number: US-009507513-1601USA002402

PATIENT
  Age: 17 Year
  Sex: Female
  Weight: 85.26 kg

DRUGS (1)
  1. NEXPLANON [Suspect]
     Active Substance: ETONOGESTREL
     Indication: CONTRACEPTION
     Dosage: EVERY 3 YEARS
     Route: 059
     Dates: start: 20160106

REACTIONS (4)
  - Musculoskeletal pain [Unknown]
  - Implant site erythema [Unknown]
  - Pain in extremity [Unknown]
  - Implant site pain [Unknown]

NARRATIVE: CASE EVENT DATE: 20160106
